FAERS Safety Report 4778523-5 (Version None)
Quarter: 2005Q3

REPORT INFORMATION
  Report Type: 
  Country: None (occurrence: None)
  Receive Date: 20050926
  Receipt Date: 20050620
  Transmission Date: 20060218
  Serious: No
  Sender: FDA-Public Use
  Company Number: US-BRISTOL-MYERS SQUIBB COMPANY-13009543

PATIENT
  Sex: Male
  Weight: 71 kg

DRUGS (7)
  1. REYATAZ [Suspect]
     Dosage: STARTED 18 MONTHS AGO
  2. ZERIT [Suspect]
     Dosage: STARTED 18 MONTHS AGO
  3. EPIVIR [Suspect]
     Dosage: STARTED 18 MONTHS AGO
  4. ZIAGEN [Suspect]
     Dosage: STARTED 18 MONTHS AGO
  5. PRILOSEC [Concomitant]
  6. ZANTAC [Concomitant]
  7. PROTONIX [Concomitant]

REACTIONS (2)
  - OESOPHAGITIS [None]
  - WEIGHT DECREASED [None]
